FAERS Safety Report 8127679-5 (Version None)
Quarter: 2012Q1

REPORT INFORMATION
  Report Type: 
  Country: None (occurrence: None)
  Receive Date: 20120210
  Receipt Date: 20120207
  Transmission Date: 20120608
  Serious: Yes (Other)
  Sender: FDA-Public Use
  Company Number: US-PFIZER INC-2012033743

PATIENT
  Sex: Male
  Weight: 132 kg

DRUGS (7)
  1. GABAPENTIN [Suspect]
     Dosage: 2 X 300 MG DAILY
     Dates: start: 20110101
  2. GABAPENTIN [Suspect]
     Indication: DIABETIC NEUROPATHY
     Dosage: 2 X 300 MG TWO TIMES A DAY
     Dates: start: 20110801, end: 20110101
  3. METFORMIN [Concomitant]
     Dosage: UNK, 2X/DAY
  4. SIMVASTATIN [Concomitant]
     Dosage: UNK
  5. NIACIN [Concomitant]
     Dosage: UNK
  6. MULTI-VITAMINS [Concomitant]
     Dosage: UNK
  7. ACETYLSALICYLIC ACID [Concomitant]
     Dosage: 81 MG, DAILY

REACTIONS (3)
  - EMOTIONAL DISORDER [None]
  - GLYCOSYLATED HAEMOGLOBIN INCREASED [None]
  - BLOOD GLUCOSE INCREASED [None]
